FAERS Safety Report 14368636 (Version 4)
Quarter: 2018Q1

REPORT INFORMATION
  Report Type: Spontaneous
  Country: US (occurrence: US)
  Receive Date: 20180109
  Receipt Date: 20180216
  Transmission Date: 20180509
  Serious: Yes (Disabling, Other)
  Sender: FDA-Public Use
  Company Number: US-ALLERGAN-1774032US

PATIENT
  Age: 43 Year
  Sex: Male

DRUGS (2)
  1. MOTRIN [Concomitant]
     Active Substance: IBUPROFEN
     Indication: BACK PAIN
     Dosage: UNK
  2. ESCITALOPRAM OXALATE - BP [Suspect]
     Active Substance: ESCITALOPRAM OXALATE
     Indication: ANXIETY
     Dosage: 5 MG, QD
     Route: 048
     Dates: start: 20170428, end: 20170428

REACTIONS (12)
  - Burning sensation [Recovered/Resolved]
  - Vomiting [Recovered/Resolved]
  - Myalgia [Recovering/Resolving]
  - Dystonia [Recovered/Resolved]
  - Joint swelling [Recovered/Resolved]
  - Wrong technique in product usage process [Unknown]
  - Tremor [Recovering/Resolving]
  - Small fibre neuropathy [Recovering/Resolving]
  - Quality of life decreased [Unknown]
  - Erythromelalgia [Not Recovered/Not Resolved]
  - Erythema [Unknown]
  - Palpitations [Recovered/Resolved]

NARRATIVE: CASE EVENT DATE: 20170428
